FAERS Safety Report 8117830-5 (Version None)
Quarter: 2011Q4

REPORT INFORMATION
  Report Type: 
  Country: None (occurrence: None)
  Receive Date: 20111227
  Receipt Date: 20111025
  Transmission Date: 20120403
  Serious: No
  Sender: FDA-Public Use
  Company Number: PHHY2011US69585

PATIENT
  Age: 58 Year
  Sex: Male
  Weight: 74.4 kg

DRUGS (5)
  1. LISINOPRIL [Concomitant]
  2. MULTIVITAMIN [Concomitant]
  3. MIRTAZAPINE [Concomitant]
  4. VALIUM [Concomitant]
  5. GILENYA [Suspect]
     Dosage: 1 DF, QD, ORAL
     Route: 048

REACTIONS (5)
  - DIARRHOEA [None]
  - VISION BLURRED [None]
  - MUSCLE SPASTICITY [None]
  - HEADACHE [None]
  - HYPOAESTHESIA [None]
